FAERS Safety Report 7503437-7 (Version None)
Quarter: 2011Q2

REPORT INFORMATION
  Report Type: 
  Country: None (occurrence: None)
  Receive Date: 20110525
  Receipt Date: 20110518
  Transmission Date: 20111010
  Serious: Yes (Hospitalization)
  Sender: FDA-Public Use
  Company Number: US-ROCHE-664295

PATIENT
  Sex: Male
  Weight: 109 kg

DRUGS (10)
  1. ASPIRIN [Concomitant]
     Dates: start: 20090214
  2. CELEXA [Concomitant]
  3. AVALIDE [Concomitant]
     Dates: start: 20090214
  4. KLOR-CON [Concomitant]
     Dates: start: 20090214
  5. RIBAVIRIN [Suspect]
     Dosage: FREQUENCY REPORTED AS: QD.(EVERY DAY); LAST DOSE PRIOR TO SAE: 18 OCT 2009.
     Route: 048
     Dates: start: 20090127
  6. DARVOCET-N 50 [Concomitant]
     Dosage: TOTAL DAILY DOSE:100/650 MG
  7. PEGINTERFERON ALFA-2A [Suspect]
     Dosage: LAST DOSE PRIOR TO SAE: 13 OCTOBER 2009.FORM REPORTED AS: PREFILLED SYRINGES.
     Route: 058
     Dates: start: 20090127
  8. TOPREL [Concomitant]
     Dosage: DRUG REPORTED AS: TOPREL XL
     Dates: start: 20090214
  9. DILTIAZEM HCL [Concomitant]
  10. AMBIEN [Concomitant]

REACTIONS (2)
  - DELIRIUM [None]
  - SYNCOPE [None]
